FAERS Safety Report 14655291 (Version 1)
Quarter: 2018Q1

REPORT INFORMATION
  Report Type: Spontaneous
  Country: US (occurrence: US)
  Receive Date: 20180319
  Receipt Date: 20180319
  Transmission Date: 20180509
  Serious: No
  Sender: FDA-Public Use
  Company Number: US-BAYER-2018-052401

PATIENT
  Age: 72 Year
  Sex: Male

DRUGS (2)
  1. ANTISEPTIC [Concomitant]
     Indication: INJECTION SITE HYPOAESTHESIA
     Dosage: UNK
     Dates: start: 2016
  2. NEXAVAR [Suspect]
     Active Substance: SORAFENIB

REACTIONS (2)
  - Tremor [None]
  - Visual impairment [None]
